FAERS Safety Report 7678894-6 (Version None)
Quarter: 2011Q3

REPORT INFORMATION
  Report Type: 
  Country: None (occurrence: None)
  Receive Date: 20110812
  Receipt Date: 20110803
  Transmission Date: 20111222
  Serious: Yes (Hospitalization)
  Sender: FDA-Public Use
  Company Number: BR-BIOGENIDEC-2010BI006515

PATIENT
  Age: 57 Year
  Sex: Female

DRUGS (1)
  1. AVONEX [Suspect]
     Indication: MULTIPLE SCLEROSIS
     Route: 030
     Dates: start: 20091026

REACTIONS (6)
  - GASTRIC POLYPS [None]
  - MYALGIA [None]
  - HYPERCHOLESTEROLAEMIA [None]
  - PYREXIA [None]
  - CHOLECYSTITIS [None]
  - INFLUENZA LIKE ILLNESS [None]
